FAERS Safety Report 7824923-6 (Version None)
Quarter: 2011Q4

REPORT INFORMATION
  Report Type: 
  Country: None (occurrence: None)
  Receive Date: 20111019
  Receipt Date: 20110225
  Transmission Date: 20120403
  Serious: No
  Sender: FDA-Public Use
  Company Number: US-BRISTOL-MYERS SQUIBB COMPANY-15570757

PATIENT
  Age: 67 Year
  Sex: Female

DRUGS (5)
  1. NORVASC [Concomitant]
  2. GLYBURIDE [Concomitant]
  3. LISINOPRIL [Concomitant]
  4. AVALIDE [Suspect]
     Dosage: TOTAL DURATION: 4 OR 5 YEARS
  5. METFORMIN HCL [Concomitant]

REACTIONS (2)
  - BLOOD PRESSURE INCREASED [None]
  - HEADACHE [None]
